FAERS Safety Report 19301869 (Version 1)
Quarter: 2021Q2

REPORT INFORMATION
  Report Type: Spontaneous
  Country: US (occurrence: US)
  Receive Date: 20210525
  Receipt Date: 20210525
  Transmission Date: 20210717
  Serious: Yes (Hospitalization)
  Sender: FDA-Public Use
  Company Number: None

PATIENT
  Sex: Male

DRUGS (6)
  1. STELARA [Suspect]
     Active Substance: USTEKINUMAB
     Indication: COLITIS ULCERATIVE
     Dosage: ?          OTHER FREQUENCY:EVERY 7 DAYS;?
     Route: 058
  2. FOLIC ACID. [Concomitant]
     Active Substance: FOLIC ACID
  3. PROBIOTIC [Concomitant]
     Active Substance: PROBIOTICS NOS
  4. APRISO [Concomitant]
     Active Substance: MESALAMINE
  5. VITAMIN D [Concomitant]
     Active Substance: VITAMIN D NOS
  6. PREDNISONE. [Concomitant]
     Active Substance: PREDNISONE

REACTIONS (1)
  - Colitis ulcerative [None]
